FAERS Safety Report 6899886-0 (Version None)
Quarter: 2010Q3

REPORT INFORMATION
  Report Type: 
  Country: None (occurrence: None)
  Receive Date: 20100803
  Receipt Date: 20100727
  Transmission Date: 20110219
  Serious: Yes (Hospitalization)
  Sender: FDA-Public Use
  Company Number: GB-MILLENNIUM PHARMACEUTICALS, INC.-2010-03054

PATIENT

DRUGS (6)
  1. VELCADE [Suspect]
     Indication: MULTIPLE MYELOMA
     Dosage: 2.6 MG, UNK
     Route: 042
     Dates: start: 20100208, end: 20100426
  2. RAMIPRIL [Concomitant]
     Indication: HYPERTENSION
     Dosage: 500 MG, UNK
  3. ATORVASTATIN [Concomitant]
     Indication: HYPERCHOLESTEROLAEMIA
     Dosage: 20 MG, UNK
  4. CIPROXACIN [Concomitant]
     Indication: ARTHRITIS
     Dosage: UNK
  5. OMEPRAZOLE [Concomitant]
     Dosage: 40 MG, UNK
  6. LEVOTHYROXINE SODIUM [Concomitant]
     Indication: HYPOTHYROIDISM
     Dosage: 50 UG, UNK

REACTIONS (3)
  - DRUG INEFFECTIVE [None]
  - PULMONARY HYPERTENSION [None]
  - RIGHT VENTRICULAR FAILURE [None]
